FAERS Safety Report 5695768-0 (Version None)
Quarter: 2008Q2

REPORT INFORMATION
  Report Type: 
  Country: None (occurrence: None)
  Receive Date: 20080407
  Receipt Date: 20080402
  Transmission Date: 20081010
  Serious: Yes (Other)
  Sender: FDA-Public Use
  Company Number: GB-WYE-G01338708

PATIENT
  Age: 29 Year
  Sex: Male

DRUGS (4)
  1. VENLAFAXINE HYDROCHLORIDE [Suspect]
  2. OLANZAPINE [Concomitant]
     Dosage: 15MG, FREQUENCY UNKNOWN
  3. CLOZARIL [Interacting]
     Indication: SCHIZOPHRENIA
     Route: 048
     Dates: start: 20080303, end: 20080101
  4. CLOZARIL [Interacting]
     Route: 048
     Dates: start: 20080101

REACTIONS (2)
  - DRUG INTERACTION [None]
  - HEART RATE INCREASED [None]
